FAERS Safety Report 23956970 (Version 8)
Quarter: 2025Q3

REPORT INFORMATION
  Report Type: Report from Study
  Country: CA (occurrence: CA)
  Receive Date: 20240610
  Receipt Date: 20250905
  Transmission Date: 20251021
  Serious: Yes (Other)
  Sender: PFIZER
  Company Number: CA-PFIZER INC-202400185579

PATIENT
  Age: 59 Year
  Sex: Female

DRUGS (20)
  1. ADALIMUMAB [Suspect]
     Active Substance: ADALIMUMAB
     Indication: Rheumatoid arthritis
     Route: 058
  2. ADALIMUMAB [Suspect]
     Active Substance: ADALIMUMAB
     Route: 058
  3. ADALIMUMAB [Suspect]
     Active Substance: ADALIMUMAB
     Indication: Rheumatoid arthritis
     Route: 058
  4. BILASTINE [Concomitant]
     Active Substance: BILASTINE
     Indication: Hypersensitivity
  5. COVID-19 VACCINE [Concomitant]
  6. FOLIC ACID [Concomitant]
     Active Substance: FOLIC ACID
  7. FOLIC ACID [Concomitant]
     Active Substance: FOLIC ACID
  8. HYDROXYCHLOROQUINE SULFATE [Concomitant]
     Active Substance: HYDROXYCHLOROQUINE SULFATE
  9. HYDROXYCHLOROQUINE SULFATE [Concomitant]
     Active Substance: HYDROXYCHLOROQUINE SULFATE
     Route: 065
  10. MOMETASONE FUROATE\OLOPATADINE HYDROCHLORIDE [Concomitant]
     Active Substance: MOMETASONE FUROATE\OLOPATADINE HYDROCHLORIDE
     Indication: Sinus disorder
  11. MOMETASONE FUROATE\OLOPATADINE HYDROCHLORIDE [Concomitant]
     Active Substance: MOMETASONE FUROATE\OLOPATADINE HYDROCHLORIDE
     Indication: Hypersensitivity
  12. MOMETASONE FUROATE\OLOPATADINE HYDROCHLORIDE [Concomitant]
     Active Substance: MOMETASONE FUROATE\OLOPATADINE HYDROCHLORIDE
     Indication: Sinus disorder
  13. MOMETASONE FUROATE\OLOPATADINE HYDROCHLORIDE [Concomitant]
     Active Substance: MOMETASONE FUROATE\OLOPATADINE HYDROCHLORIDE
     Indication: Hypersensitivity
  14. MONTELUKAST [Concomitant]
     Active Substance: MONTELUKAST
     Indication: Hypersensitivity
  15. NAPROXEN [Concomitant]
     Active Substance: NAPROXEN
     Route: 065
  16. PANTOPRAZOLE SODIUM ANHYDROUS [Concomitant]
     Active Substance: PANTOPRAZOLE SODIUM ANHYDROUS
     Route: 065
  17. TYLENOL ARTHRITIS PAIN [Concomitant]
     Active Substance: ACETAMINOPHEN
  18. TYLENOL ARTHRITIS PAIN [Concomitant]
     Active Substance: ACETAMINOPHEN
     Route: 065
  19. VITAMIN D NOS [Concomitant]
     Active Substance: CHOLECALCIFEROL\ERGOCALCIFEROL
     Route: 065
  20. PANTOPRAZOLE SODIUM [Concomitant]
     Active Substance: PANTOPRAZOLE SODIUM
     Route: 065

REACTIONS (16)
  - Accidental exposure to product [Recovered/Resolved]
  - Exposure via skin contact [Recovered/Resolved]
  - Butterfly rash [Recovered/Resolved]
  - Exposure to SARS-CoV-2 [Recovered/Resolved]
  - Fatigue [Recovered/Resolved]
  - Intentional dose omission [Recovered/Resolved]
  - Pollakiuria [Recovered/Resolved]
  - Pruritus [Recovered/Resolved]
  - Rash [Recovered/Resolved]
  - Swelling face [Recovered/Resolved]
  - Systemic lupus erythematosus [Recovered/Resolved]
  - Urinary tract infection [Recovered/Resolved]
  - Gastroenteritis listeria [Recovered/Resolved]
  - Immunodeficiency [Recovered/Resolved]
  - Illness [Recovered/Resolved]
  - Blood uric acid increased [Recovered/Resolved]
